FAERS Safety Report 25886198 (Version 1)
Quarter: 2025Q4

REPORT INFORMATION
  Report Type: Spontaneous
  Country: US (occurrence: US)
  Receive Date: 20251006
  Receipt Date: 20251006
  Transmission Date: 20260118
  Serious: Yes (Other)
  Sender: PFIZER
  Company Number: US-PFIZER INC-PV202500117461

PATIENT
  Age: 55 Year
  Sex: Female
  Weight: 50.9 kg

DRUGS (3)
  1. TUKYSA [Suspect]
     Active Substance: TUCATINIB
     Indication: Breast cancer metastatic
     Dosage: 150 MG, 2X/DAY
     Route: 048
     Dates: start: 20250907
  2. TRASTUZUMAB [Suspect]
     Active Substance: TRASTUZUMAB
     Indication: Breast cancer female
     Dosage: UNK
     Dates: start: 20250907
  3. CAPECITABINE [Suspect]
     Active Substance: CAPECITABINE
     Indication: Breast cancer female
     Dosage: 500MG AM AND 500MG PM 7 DAYS ON 7 DAYS OFF
     Dates: start: 20250907

REACTIONS (2)
  - Breast cancer metastatic [Unknown]
  - Malignant neoplasm progression [Unknown]
